FAERS Safety Report 4706347-3 (Version None)
Quarter: 2005Q2

REPORT INFORMATION
  Report Type: 
  Country: None (occurrence: None)
  Receive Date: 20050629
  Receipt Date: 20050624
  Transmission Date: 20051028
  Serious: Yes (Hospitalization)
  Sender: FDA-Public Use
  Company Number: S05-USA-02594-01

PATIENT
  Age: 85 Year
  Sex: Female

DRUGS (9)
  1. NAMENDA [Suspect]
     Indication: DEMENTIA
     Dosage: 10 MG BID; PO
     Route: 048
  2. NAMENDA [Suspect]
     Indication: DEMENTIA
     Dosage: 5 MG QD; PO
     Route: 048
     Dates: start: 20041101
  3. NAMENDA [Suspect]
     Indication: DEMENTIA
     Dosage: 5 MG BID; PO
     Route: 048
  4. NAMENDA [Suspect]
     Indication: DEMENTIA
     Dosage: 15 MG QD; PO
     Route: 048
  5. CIPRO [Concomitant]
  6. ARICEPT [Concomitant]
  7. COREG [Concomitant]
  8. ADALAT [Concomitant]
  9. RAMIPRIL [Concomitant]

REACTIONS (5)
  - BLOOD POTASSIUM INCREASED [None]
  - DEHYDRATION [None]
  - FATIGUE [None]
  - RENAL IMPAIRMENT [None]
  - URINARY TRACT INFECTION [None]
